FAERS Safety Report 6908557-3 (Version None)
Quarter: 2010Q3

REPORT INFORMATION
  Report Type: 
  Country: None (occurrence: None)
  Receive Date: 20100708
  Receipt Date: 20090619
  Transmission Date: 20110219
  Serious: Yes (Hospitalization, Other)
  Sender: FDA-Public Use
  Company Number: 2008008332

PATIENT
  Age: 59 Year
  Sex: Female
  Weight: 77.3 kg

DRUGS (4)
  1. CHANTIX [Suspect]
     Dates: start: 20070322, end: 20070404
  2. LIPITOR [Concomitant]
  3. AMBIEN [Concomitant]
  4. ESTRADIOL [Concomitant]

REACTIONS (2)
  - DEPRESSION [None]
  - SUICIDAL IDEATION [None]
